FAERS Safety Report 4308655-7 (Version None)
Quarter: 2004Q1

REPORT INFORMATION
  Report Type: 
  Country: None (occurrence: None)
  Receive Date: 20040301
  Receipt Date: 20040218
  Transmission Date: 20041129
  Serious: Yes (Hospitalization)
  Sender: FDA-Public Use
  Company Number: US012767

PATIENT
  Sex: Male

DRUGS (1)
  1. PROVIGIL [Suspect]

REACTIONS (1)
  - STEVENS-JOHNSON SYNDROME [None]
